FAERS Safety Report 20937662 (Version 1)
Quarter: 2022Q2

REPORT INFORMATION
  Report Type: Other
  Country: RO (occurrence: RO)
  Receive Date: 20220609
  Receipt Date: 20220609
  Transmission Date: 20220721
  Serious: Yes (Other)
  Sender: FDA-Public Use
  Company Number: RO-Accord-263530

PATIENT
  Age: 67 Year
  Sex: Male

DRUGS (10)
  1. OXALIPLATIN [Suspect]
     Active Substance: OXALIPLATIN
     Indication: Prostate cancer
     Dosage: IN 500 ML GLUCOSE 5%, OVER 120 MINUTES, REPEATED AFTER 21 DAYS.
     Route: 042
  2. OXALIPLATIN [Suspect]
     Active Substance: OXALIPLATIN
     Indication: Adenocarcinoma of colon
     Dosage: 85 MILLIGRAM/SQ. METER IN 500 ML GLUCOSE 5% OVER 120 MINUTES
     Route: 042
  3. CAPECITABINE [Suspect]
     Active Substance: CAPECITABINE
     Indication: Adenocarcinoma of colon
     Dosage: DAYS 1-14, TABLETS OF 500 MG
     Route: 048
  4. CAPECITABINE [Suspect]
     Active Substance: CAPECITABINE
     Indication: Prostate cancer
  5. LEUCOVORIN CALCIUM [Suspect]
     Active Substance: LEUCOVORIN CALCIUM
     Indication: Prostate cancer
     Dosage: 400 MILLIGRAM/SQ. METER IN 250 ML GLUCOSE 5% OVER 120 MINUTES
     Route: 042
  6. LEUCOVORIN CALCIUM [Suspect]
     Active Substance: LEUCOVORIN CALCIUM
     Indication: Adenocarcinoma of colon
  7. FLUOROURACIL [Suspect]
     Active Substance: FLUOROURACIL
     Indication: Adenocarcinoma of colon
     Dosage: 2400 MILLIGRAM/SQ. METER OVER 46 HOURS
     Route: 042
  8. FLUOROURACIL [Suspect]
     Active Substance: FLUOROURACIL
     Indication: Prostate cancer
     Dosage: 400 MILLIGRAM/SQ. METER OVER 10 MINUTES
     Route: 040
  9. PANITUMUMAB [Suspect]
     Active Substance: PANITUMUMAB
     Indication: Prostate cancer
     Dosage: 6 MILLIGRAM/SQ. METER IN 100 ML SODIUM CHLORIDE 0.9% OVER 60 MINUTES
     Route: 042
  10. PANITUMUMAB [Suspect]
     Active Substance: PANITUMUMAB
     Indication: Adenocarcinoma of colon

REACTIONS (2)
  - Thrombocytopenia [Unknown]
  - Disease recurrence [Unknown]
